FAERS Safety Report 22645990 (Version 1)
Quarter: 2023Q2

REPORT INFORMATION
  Report Type: Report from Study
  Country: ZA (occurrence: None)
  Receive Date: 20230627
  Receipt Date: 20230627
  Transmission Date: 20230722
  Serious: Yes (Death)
  Sender: FDA-Public Use
  Company Number: 2023A147052

PATIENT
  Age: 34 Year
  Sex: Male

DRUGS (12)
  1. BUDESONIDE\FORMOTEROL [Suspect]
     Active Substance: BUDESONIDE\FORMOTEROL
     Indication: Asthma
     Dosage: 160 UG/INHAL, TWO TIMES A DAY
     Route: 055
  2. AMILORIDE HYDROCHLORIDE\HYDROCHLOROTHIAZIDE [Concomitant]
     Active Substance: AMILORIDE HYDROCHLORIDE\HYDROCHLOROTHIAZIDE
     Indication: Hypertension
     Route: 048
  3. ADCO-EMTEVIR [Concomitant]
     Indication: Antiviral prophylaxis
     Route: 048
  4. EDURANT [Concomitant]
     Active Substance: RILPIVIRINE HYDROCHLORIDE
     Indication: Antiviral prophylaxis
     Route: 048
  5. ASTHAVENT ECOHALER [Concomitant]
     Indication: Bronchospasm
     Dosage: 100.0UG/INHAL AS REQUIRED
     Route: 055
  6. ASTHAVENT ECOHALER [Concomitant]
     Indication: Asthma
     Dosage: 100.0UG/INHAL AS REQUIRED
     Route: 055
  7. ALPRAZOLAM [Concomitant]
     Active Substance: ALPRAZOLAM
     Indication: Anxiety
     Dosage: 1.0MG AS REQUIRED
     Route: 048
  8. ALPRAZOLAM [Concomitant]
     Active Substance: ALPRAZOLAM
     Indication: Stress
     Dosage: 1.0MG AS REQUIRED
     Route: 048
  9. VENLAFAXINE XR ADCO [Concomitant]
     Indication: Depression
     Route: 048
  10. VENLAFAXINE XR ADCO [Concomitant]
     Indication: Anxiety disorder
     Route: 048
  11. VENLAFAXINE XR ADCO [Concomitant]
     Indication: Depression
     Route: 048
  12. VENLAFAXINE XR ADCO [Concomitant]
     Indication: Anxiety disorder
     Route: 048

REACTIONS (1)
  - Death [Fatal]
